FAERS Safety Report 6713103-3 (Version None)
Quarter: 2010Q2

REPORT INFORMATION
  Report Type: 
  Country: None (occurrence: None)
  Receive Date: 20100506
  Receipt Date: 20100122
  Transmission Date: 20101027
  Serious: No
  Sender: FDA-Public Use
  Company Number: A0842432A

PATIENT
  Age: 66 Year
  Sex: Male

DRUGS (4)
  1. ANDRODERM [Suspect]
     Dosage: 2.5MG PER DAY
     Route: 062
     Dates: start: 20090101
  2. AMOXICILLIN [Suspect]
     Dosage: 2CAP TWICE PER DAY
     Route: 065
     Dates: start: 20100101, end: 20100101
  3. FLUOXETINE [Suspect]
     Indication: DEPRESSION
     Dosage: 10MG PER DAY
     Route: 065
  4. LISINOPRIL [Suspect]
     Indication: HYPERTENSION
     Dosage: 20MG PER DAY
     Route: 065
     Dates: start: 20090101, end: 20100101

REACTIONS (3)
  - BLOOD TESTOSTERONE DECREASED [None]
  - DRUG INEFFECTIVE [None]
  - DRUG INTERACTION [None]
